FAERS Safety Report 20083058 (Version 1)
Quarter: 2021Q4

REPORT INFORMATION
  Report Type: Spontaneous
  Country: US (occurrence: US)
  Receive Date: 20211117
  Receipt Date: 20211117
  Transmission Date: 20220303
  Serious: No
  Sender: FDA-Public Use
  Company Number: US-009507513-2110USA005615

PATIENT
  Age: 64 Year
  Sex: Male

DRUGS (2)
  1. PROVENTIL [Suspect]
     Active Substance: ALBUTEROL
     Indication: Arthritis
  2. EPINEPHRINE [Suspect]
     Active Substance: EPINEPHRINE
     Indication: Arthritis

REACTIONS (1)
  - Drug ineffective [Unknown]
